FAERS Safety Report 8543568-6 (Version None)
Quarter: 2012Q3

REPORT INFORMATION
  Report Type: 
  Country: None (occurrence: None)
  Receive Date: 20120727
  Receipt Date: 20120718
  Transmission Date: 20120928
  Serious: Yes (Death, Other)
  Sender: FDA-Public Use
  Company Number: NL-CELGENEUS-114-20785-12051152

PATIENT
  Sex: Male
  Weight: 94 kg

DRUGS (6)
  1. MELPHALAN HYDROCHLORIDE [Suspect]
     Indication: MULTIPLE MYELOMA
     Route: 065
     Dates: start: 20100726, end: 20110112
  2. THALIDOMIDE [Suspect]
     Dosage: 200 MILLIGRAM
     Route: 048
     Dates: start: 20101023
  3. PREDNISONE [Suspect]
     Dosage: 180 MILLIGRAM
     Route: 048
     Dates: start: 20101026
  4. MELPHALAN HYDROCHLORIDE [Suspect]
     Dosage: 16 MILLIGRAM
     Route: 048
     Dates: start: 20101023
  5. PREDNISONE [Suspect]
     Indication: MULTIPLE MYELOMA
     Route: 065
     Dates: start: 20100726, end: 20110112
  6. THALIDOMIDE [Suspect]
     Indication: MULTIPLE MYELOMA
     Route: 048
     Dates: start: 20100726, end: 20110112

REACTIONS (1)
  - GASTRIC NEOPLASM [None]
